FAERS Safety Report 7040548-7 (Version None)
Quarter: 2010Q4

REPORT INFORMATION
  Report Type: 
  Country: None (occurrence: None)
  Receive Date: 20101006
  Receipt Date: 20100928
  Transmission Date: 20110411
  Serious: Yes (Death)
  Sender: FDA-Public Use
  Company Number: 019540

PATIENT
  Sex: Male
  Weight: 11.3 kg

DRUGS (7)
  1. KEPPRA [Suspect]
     Indication: EPILEPSY
     Dosage: SEE IMAGE
     Route: 064
     Dates: start: 20080513
  2. KEPPRA [Suspect]
     Indication: EPILEPSY
     Dosage: SEE IMAGE
     Route: 064
     Dates: start: 20080528
  3. KEPPRA [Suspect]
     Indication: EPILEPSY
     Dosage: SEE IMAGE
     Route: 064
     Dates: start: 20080619
  4. KEPPRA [Suspect]
     Indication: EPILEPSY
     Dosage: SEE IMAGE
     Route: 064
     Dates: start: 20080711
  5. SYNTHROID [Concomitant]
  6. FOLIC ACID [Concomitant]
  7. PRENATAL VITAMINS [Concomitant]

REACTIONS (3)
  - ACUTE MYELOID LEUKAEMIA [None]
  - BONE MARROW TRANSPLANT [None]
  - MATERNAL DRUGS AFFECTING FOETUS [None]
